FAERS Safety Report 22149662 (Version 1)
Quarter: 2023Q1

REPORT INFORMATION
  Report Type: Report from Study
  Country: DE (occurrence: DE)
  Receive Date: 20230329
  Receipt Date: 20230329
  Transmission Date: 20230418
  Serious: Yes (Other)
  Sender: FDA-Public Use
  Company Number: DE-ABBVIE-4704234

PATIENT
  Age: 4 Year
  Sex: Female

DRUGS (1)
  1. HUMIRA [Suspect]
     Active Substance: ADALIMUMAB
     Indication: Uveitis
     Route: 058
     Dates: start: 20221221

REACTIONS (3)
  - Loose tooth [Recovering/Resolving]
  - Fall [Recovering/Resolving]
  - Tooth injury [Recovering/Resolving]

NARRATIVE: CASE EVENT DATE: 20230301
